FAERS Safety Report 4710637-8 (Version None)
Quarter: 2005Q3

REPORT INFORMATION
  Report Type: 
  Country: None (occurrence: None)
  Receive Date: 20050707
  Receipt Date: 20050624
  Transmission Date: 20060218
  Serious: Yes (Hospitalization)
  Sender: FDA-Public Use
  Company Number: HQWYE683824JUN05

PATIENT
  Age: 70 Year
  Sex: Male

DRUGS (5)
  1. PANTOPRAZOLE SODIUM [Suspect]
     Dosage: 20 MG 1X PER 1 DAY ORAL
     Route: 048
     Dates: end: 20050427
  2. FORTZAAR (HYDROCHLOROTHIAZIDE/LOSARTAN POTASSIUM,) [Suspect]
     Indication: ESSENTIAL HYPERTENSION
     Dosage: 100 MG 1X PER 1 DAY ORAL
     Route: 048
     Dates: end: 20050504
  3. NEXIUM [Suspect]
     Dosage: 40 MG 1X PER 1 DAY ORAL
     Route: 048
     Dates: start: 20050428, end: 20050504
  4. ACETAMINOPHEN [Suspect]
     Dosage: 3 G 1X PER 1 DAY ORAL
     Route: 048
     Dates: end: 20050504
  5. SECTRAL [Suspect]
     Indication: ESSENTIAL HYPERTENSION
     Dosage: 500 MG 1X PER 1 DAY ORAL
     Route: 048

REACTIONS (7)
  - ECCHYMOSIS [None]
  - GASTROINTESTINAL CARCINOMA [None]
  - GASTROINTESTINAL NEOPLASM [None]
  - INJECTION SITE HAEMORRHAGE [None]
  - METASTASES TO LIVER [None]
  - RECTAL HAEMORRHAGE [None]
  - THROMBOCYTOPENIA [None]
